FAERS Safety Report 5960664-8 (Version None)
Quarter: 2008Q4

REPORT INFORMATION
  Report Type: 
  Country: None (occurrence: None)
  Receive Date: 20081120
  Receipt Date: 20080818
  Transmission Date: 20090506
  Serious: No
  Sender: FDA-Public Use
  Company Number: US-ABBOTT-08P-163-0470805-00

PATIENT
  Sex: Female
  Weight: 99.88 kg

DRUGS (1)
  1. BIAXIN [Suspect]
     Indication: DRUG USE FOR UNKNOWN INDICATION
     Route: 048
     Dates: start: 19960101

REACTIONS (1)
  - ABDOMINAL DISCOMFORT [None]
